FAERS Safety Report 18763955 (Version 2)
Quarter: 2021Q1

REPORT INFORMATION
  Report Type: Spontaneous
  Country: US (occurrence: US)
  Receive Date: 20210120
  Receipt Date: 20210203
  Transmission Date: 20210419
  Serious: No
  Sender: FDA-Public Use
  Company Number: US-009507513-2101USA001608

PATIENT
  Sex: Female

DRUGS (1)
  1. DULERA [Suspect]
     Active Substance: FORMOTEROL FUMARATE DIHYDRATE\MOMETASONE FUROATE
     Dosage: 100/5 MICROGRAM, BID

REACTIONS (4)
  - Poor quality device used [Unknown]
  - No adverse event [Unknown]
  - Incorrect dose administered [Unknown]
  - Device malfunction [Unknown]
